FAERS Safety Report 6665152-1 (Version None)
Quarter: 2010Q2

REPORT INFORMATION
  Report Type: 
  Country: None (occurrence: None)
  Receive Date: 20100402
  Receipt Date: 20100323
  Transmission Date: 20101027
  Serious: Yes (Hospitalization)
  Sender: FDA-Public Use
  Company Number: GB-ABBOTT-10P-167-0633972-00

PATIENT
  Age: 38 Year
  Sex: Female

DRUGS (7)
  1. VALPROATE SODIUM [Suspect]
     Indication: DRUG USE FOR UNKNOWN INDICATION
  2. VALPROATE SODIUM [Suspect]
  3. ABILIFY [Suspect]
     Indication: DRUG USE FOR UNKNOWN INDICATION
  4. ABILIFY [Suspect]
  5. ABILIFY [Suspect]
     Route: 048
  6. ABILIFY [Suspect]
  7. FOLIC ACID [Suspect]
     Indication: DRUG USE FOR UNKNOWN INDICATION

REACTIONS (3)
  - BIPOLAR DISORDER [None]
  - DRUG ABUSE [None]
  - TREATMENT NONCOMPLIANCE [None]
